FAERS Safety Report 21858619 (Version 1)
Quarter: 2023Q1

REPORT INFORMATION
  Report Type: Report from Study
  Country: US (occurrence: US)
  Receive Date: 20230113
  Receipt Date: 20230113
  Transmission Date: 20230418
  Serious: No
  Sender: FDA-Public Use
  Company Number: US-ABBVIE-4230981

PATIENT
  Sex: Male

DRUGS (1)
  1. HUMIRA [Suspect]
     Active Substance: ADALIMUMAB
     Indication: Crohn^s disease
     Route: 058

REACTIONS (5)
  - Depression [Recovering/Resolving]
  - Stress [Recovering/Resolving]
  - Illness [Recovering/Resolving]
  - Bipolar disorder [Recovering/Resolving]
  - Diverticulitis [Recovering/Resolving]
